FAERS Safety Report 8098709-4 (Version None)
Quarter: 2012Q1

REPORT INFORMATION
  Report Type: 
  Country: None (occurrence: None)
  Receive Date: 20120131
  Receipt Date: 20120123
  Transmission Date: 20120608
  Serious: Yes (Hospitalization)
  Sender: FDA-Public Use
  Company Number: CHPA2012US001913

PATIENT
  Sex: Male

DRUGS (2)
  1. EXCEDRIN (MIGRAINE) [Suspect]
     Indication: HEADACHE
     Dosage: UNK, UNK
     Route: 048
  2. ANTIDEPRESSANTS [Concomitant]
     Indication: DEPRESSION
     Dosage: UNK, UNK

REACTIONS (4)
  - IMPAIRED DRIVING ABILITY [None]
  - AGGRESSION [None]
  - PERSONALITY CHANGE [None]
  - DELUSION [None]
